FAERS Safety Report 5467375-6 (Version None)
Quarter: 2007Q3

REPORT INFORMATION
  Report Type: 
  Country: None (occurrence: None)
  Receive Date: 20070820
  Receipt Date: 20070517
  Transmission Date: 20080115
  Serious: No
  Sender: FDA-Public Use
  Company Number: WAES 0705USA03419

PATIENT
  Age: 67 Year
  Sex: Female

DRUGS (10)
  1. JANUVIA [Suspect]
     Indication: DIABETES MELLITUS
     Dosage: 100 MG/DAILY/PO
     Route: 048
     Dates: start: 20070217
  2. AVANDIA [Concomitant]
  3. COUMADIN [Concomitant]
  4. DYAZIDE [Concomitant]
  5. GLUCOPHAGE [Concomitant]
  6. LASIX [Concomitant]
  7. LOPRESSOR [Concomitant]
  8. GLYBURIDE [Concomitant]
  9. LOVASTATIN [Concomitant]
  10. POTASSIUM CHLORIDE [Concomitant]

REACTIONS (1)
  - MEDICATION RESIDUE [None]
